FAERS Safety Report 12982180 (Version 6)
Quarter: 2020Q4

REPORT INFORMATION
  Report Type: Spontaneous
  Country: US (occurrence: US)
  Receive Date: 20161129
  Receipt Date: 20201026
  Transmission Date: 20210113
  Serious: Yes (Other)
  Sender: FDA-Public Use
  Company Number: US-PFIZER INC-2015141048

PATIENT
  Age: 68 Year
  Sex: Male
  Weight: 102 kg

DRUGS (23)
  1. LYRICA [Suspect]
     Active Substance: PREGABALIN
     Indication: MYALGIA
     Dosage: 150 MG, 2X/DAY
     Route: 048
  2. LYRICA [Suspect]
     Active Substance: PREGABALIN
     Indication: NEUROPATHY PERIPHERAL
     Dosage: 500 MG, DAILY (1 CAPSULE 5 TIMES PER DAY)
     Route: 048
  3. TRAMADOL HYDROCHLORIDE. [Concomitant]
     Active Substance: TRAMADOL HYDROCHLORIDE
     Dosage: 50MG 2 TABLETS AS PRESCRIBED
     Route: 048
     Dates: start: 20161122
  4. HYDROCHLOORTHIAZIDE [Concomitant]
     Active Substance: HYDROCHLOROTHIAZIDE
     Dosage: UNK
  5. TRAMADOL HYDROCHLORIDE. [Concomitant]
     Active Substance: TRAMADOL HYDROCHLORIDE
     Indication: PAIN
     Dosage: 50 MG, AS NEEDED (50MG 1-2, 3 TIMES A DAY WHEN NECCESARY)
     Route: 048
  6. PRAVASTATIN SODIUM. [Concomitant]
     Active Substance: PRAVASTATIN SODIUM
     Dosage: 20 MG, 1X/DAY
  7. MAXITROL [Concomitant]
     Active Substance: DEXAMETHASONE\NEOMYCIN SULFATE\POLYMYXIN B SULFATE
     Dosage: UNK  (3.5-10000-0.1 SUSPENSION, 1-2 DROPS INTO AFFECTED EYE FOUR TIMES A DAY)
     Route: 047
  8. ESCITALOPRAM OXALATE. [Concomitant]
     Active Substance: ESCITALOPRAM OXALATE
     Dosage: 10 MG, 1X/DAY (20MG, 0.5 TABLET ONCE A DAY)
  9. FIORINAL [Concomitant]
     Active Substance: ASPIRIN\BUTALBITAL\CAFFEINE
     Dosage: 1 DF, 4X/DAY
  10. LYRICA [Suspect]
     Active Substance: PREGABALIN
     Indication: RENAL FAILURE
  11. TIZANIDINE. [Concomitant]
     Active Substance: TIZANIDINE
     Dosage: 4 MG, AS NEEDED (4MG TABLET 1 TABLET AS NEEDED DAILY)
  12. ALPRAZOLAM. [Concomitant]
     Active Substance: ALPRAZOLAM
     Indication: ANXIETY
     Dosage: 0.5 MG, 3X/DAY (1/2 TO 1 TABLET THREE TIMES A DAY, WHEN NECESSARY)
  13. DOXYCYCLINE. [Concomitant]
     Active Substance: DOXYCYCLINE
     Dosage: 100 MG, 2X/DAY
  14. NORVASC [Concomitant]
     Active Substance: AMLODIPINE BESYLATE
     Dosage: 5 MG, 2X/DAY
  15. LOVASTATIN. [Concomitant]
     Active Substance: LOVASTATIN
     Dosage: 40 MG, 1X/DAY (1 TABLET WITH MEAL ONCE A DAY)
  16. CITALOPRAM HYDROBROMIDE. [Concomitant]
     Active Substance: CITALOPRAM HYDROBROMIDE
     Dosage: UNK
  17. ALPRAZOLAM. [Concomitant]
     Active Substance: ALPRAZOLAM
     Indication: INSOMNIA
  18. OMNICEF [Concomitant]
     Active Substance: CEFDINIR
     Dosage: 300 MG, 2X/DAY
  19. LYRICA [Suspect]
     Active Substance: PREGABALIN
     Indication: PAIN
     Dosage: 75 MG, AS NEEDED (4 TIMES A DAY)
     Route: 048
  20. LISINOPRIL. [Concomitant]
     Active Substance: LISINOPRIL
     Dosage: UNK
  21. TRAMADOL HYDROCHLORIDE. [Concomitant]
     Active Substance: TRAMADOL HYDROCHLORIDE
     Dosage: 50MG, 1 TO 2 TABLETS BY MOUTH 3 TIMES A DAY
     Route: 048
     Dates: start: 2016
  22. SUDAFED [Concomitant]
     Active Substance: PSEUDOEPHEDRINE HYDROCHLORIDE
     Dosage: 30MG TABLET, 2 TABLETS EVERY MORNING AND ONE TABLET LATE AFTERNOON
  23. GABAPENTIN. [Concomitant]
     Active Substance: GABAPENTIN
     Dosage: 600MG (2X300MG CAPSULES) FOUR TIME A DAY

REACTIONS (5)
  - Suicidal ideation [Unknown]
  - Pain [Recovering/Resolving]
  - Arthralgia [Recovering/Resolving]
  - Burning sensation [Unknown]
  - Crying [Unknown]

NARRATIVE: CASE EVENT DATE: 201611
